FAERS Safety Report 19770851 (Version 2)
Quarter: 2021Q3

REPORT INFORMATION
  Report Type: Spontaneous
  Country: CN (occurrence: CN)
  Receive Date: 20210831
  Receipt Date: 20210831
  Transmission Date: 20211014
  Serious: Yes (Life-Threatening)
  Sender: FDA-Public Use
  Company Number: CN-BAXTER-2021BAX026782

PATIENT
  Age: 68 Year
  Sex: Female
  Weight: 70 kg

DRUGS (8)
  1. 0.9% SODIUM CHLORIDE INJECTION [Suspect]
     Active Substance: SODIUM CHLORIDE
     Dosage: DOSE REINTRODUCED; CYCLOPHOSPHAMIDE + 0.9% SODIUM CHLORIDE
     Route: 041
  2. 0.9% SODIUM CHLORIDE INJECTION [Suspect]
     Active Substance: SODIUM CHLORIDE
     Dosage: DOSE REINTRODUCED; PIRARUBICIN + 0.9% SODIUM CHLORIDE
     Route: 041
  3. 0.9% SODIUM CHLORIDE INJECTION [Suspect]
     Active Substance: SODIUM CHLORIDE
     Indication: MEDICATION DILUTION
     Dosage: DAY 1; CYCLOPHOSPHAMIDE 900 MG + 0.9% SODIUM CHLORIDE 500ML
     Route: 041
     Dates: start: 20210305, end: 20210305
  4. 0.9% SODIUM CHLORIDE INJECTION [Suspect]
     Active Substance: SODIUM CHLORIDE
     Dosage: DAY 1; PIRARUBICIN 80 MG + 0.9% SODIUM CHLORIDE 500ML
     Route: 041
     Dates: start: 20210308, end: 20210308
  5. PIRARUBICIN HYDROCHLORIDE [Suspect]
     Active Substance: PIRARUBICIN HYDROCHLORIDE
     Dosage: DOSE RE?INTRODUCED, PIRARUBICIN + 0.9% SODIUM CHLORIDE
     Route: 041
  6. ENDOXAN [Suspect]
     Active Substance: CYCLOPHOSPHAMIDE
     Indication: BREAST CANCER FEMALE
     Dosage: DAY1; CYCLOPHOSPHAMIDE 900 MG + 0.9% SODIUM CHLORIDE 500ML
     Route: 041
     Dates: start: 20210305, end: 20210305
  7. PIRARUBICIN HYDROCHLORIDE [Suspect]
     Active Substance: PIRARUBICIN HYDROCHLORIDE
     Indication: BREAST CANCER FEMALE
     Dosage: DAY1; PIRARUBICIN 80 MG + 0.9% SODIUM CHLORIDE 500ML
     Route: 041
     Dates: start: 20210305, end: 20210305
  8. ENDOXAN [Suspect]
     Active Substance: CYCLOPHOSPHAMIDE
     Dosage: DOSE RE?INTRODUCED, CYCLOPHOSPHAMIDE + 0.9% SODIUM CHLORIDE
     Route: 041

REACTIONS (1)
  - Myelosuppression [Recovering/Resolving]

NARRATIVE: CASE EVENT DATE: 20210319
